FAERS Safety Report 14339919 (Version 1)
Quarter: 2017Q4

REPORT INFORMATION
  Report Type: Spontaneous
  Country: CH (occurrence: CH)
  Receive Date: 20171231
  Receipt Date: 20171231
  Transmission Date: 20180321
  Serious: Yes (Hospitalization)
  Sender: FDA-Public Use
  Company Number: CH-TEVA-2017-CH-838949

PATIENT
  Age: 51 Year
  Sex: Female
  Weight: 79.8 kg

DRUGS (5)
  1. ESTROFEM TABLETTEN [Concomitant]
     Dosage: 2 MILLIGRAM DAILY;
     Route: 048
  2. OLFEN [Suspect]
     Active Substance: DICLOFENAC SODIUM
     Indication: BACK PAIN
     Route: 048
     Dates: start: 20161123, end: 20161126
  3. IRFEN -400 LACTAB [Suspect]
     Active Substance: IBUPROFEN
     Indication: BACK PAIN
     Dosage: 800 MILLIGRAM DAILY;
     Route: 048
     Dates: start: 20161123, end: 20161126
  4. METAMIZOL [Suspect]
     Active Substance: METAMIZOLE SODIUM
     Indication: BACK PAIN
     Route: 065
     Dates: start: 20161123, end: 20161124
  5. SIRDALUD [Suspect]
     Active Substance: TIZANIDINE
     Indication: BACK PAIN
     Route: 048
     Dates: start: 20161123, end: 20161126

REACTIONS (3)
  - Agranulocytosis [Recovering/Resolving]
  - Chills [Recovering/Resolving]
  - Oropharyngeal pain [Recovering/Resolving]

NARRATIVE: CASE EVENT DATE: 20161217
